FAERS Safety Report 9959343 (Version 1)
Quarter: 2014Q1

REPORT INFORMATION
  Report Type: Spontaneous
  Country: US (occurrence: None)
  Receive Date: 20140228
  Receipt Date: 20140228
  Transmission Date: 20141002
  Serious: Yes (Other)
  Sender: FDA-Public Use
  Company Number: None

PATIENT
  Age: 50 Year
  Sex: Female
  Weight: 68.95 kg

DRUGS (1)
  1. BISOPROLOL FUMARATE [Suspect]
     Indication: VENTRICULAR EXTRASYSTOLES
     Route: 048
     Dates: start: 20140120, end: 20140209

REACTIONS (3)
  - Ventricular extrasystoles [None]
  - Myalgia [None]
  - Product substitution issue [None]
